FAERS Safety Report 10470748 (Version 3)
Quarter: 2015Q1

REPORT INFORMATION
  Report Type: Spontaneous
  Country: US (occurrence: US)
  Receive Date: 20140923
  Receipt Date: 20150115
  Transmission Date: 20150720
  Serious: Yes (Other)
  Sender: FDA-Public Use
  Company Number: US-GLAXOSMITHKLINE-A1090151A

PATIENT
  Age: 39 Year

DRUGS (2)
  1. MELPHALAN [Suspect]
     Active Substance: MELPHALAN
     Indication: PLASMA CELL MYELOMA
     Dosage: UNKNOWN
     Route: 042
     Dates: start: 20131209, end: 20131209
  2. CYTOXAN [Suspect]
     Active Substance: CYCLOPHOSPHAMIDE
     Indication: PRODUCT USED FOR UNKNOWN INDICATION
     Dosage: UNKNOWN
     Route: 042
     Dates: start: 20131122, end: 20131123

REACTIONS (7)
  - Orthostatic hypertension [Unknown]
  - Stem cell transplant [Unknown]
  - Vomiting [Unknown]
  - Pancytopenia [Unknown]
  - Diarrhoea [Unknown]
  - Nausea [Unknown]
  - Dehydration [Unknown]

NARRATIVE: CASE EVENT DATE: 20131218
